FAERS Safety Report 17050082 (Version 1)
Quarter: 2019Q4

REPORT INFORMATION
  Report Type: Spontaneous
  Country: CA (occurrence: CA)
  Receive Date: 20191119
  Receipt Date: 20191119
  Transmission Date: 20200122
  Serious: Yes (Death, Other)
  Sender: FDA-Public Use
  Company Number: CA-PFIZER INC-2019497337

PATIENT
  Age: 17 Year
  Sex: Male

DRUGS (4)
  1. HYDROMORPHONE HYDROCHLORIDE. [Suspect]
     Active Substance: HYDROMORPHONE HYDROCHLORIDE
     Dosage: UNK
  2. ALCOHOL. [Suspect]
     Active Substance: ALCOHOL
     Dosage: UNK
     Route: 048
  3. MARIJUANA [Suspect]
     Active Substance: CANNABIS SATIVA SUBSP. INDICA TOP
     Dosage: UNK
     Route: 055
  4. MORPHINE SULFATE. [Suspect]
     Active Substance: MORPHINE SULFATE
     Dosage: UNK

REACTIONS (10)
  - Hypoxic-ischaemic encephalopathy [Fatal]
  - Substance abuse [Fatal]
  - Brain death [Fatal]
  - Brain hypoxia [Fatal]
  - Dyspnoea [Fatal]
  - Vomiting [Fatal]
  - Accidental overdose [Fatal]
  - Feeling abnormal [Fatal]
  - Loss of consciousness [Fatal]
  - Pyrexia [Fatal]
